FAERS Safety Report 21064613 (Version 1)
Quarter: 2022Q3

REPORT INFORMATION
  Report Type: Report from Study
  Country: PL (occurrence: PL)
  Receive Date: 20220711
  Receipt Date: 20220711
  Transmission Date: 20221026
  Serious: Yes (Other)
  Sender: FDA-Public Use
  Company Number: PL-PFIZER INC-2020100414

PATIENT
  Age: 21 Year
  Sex: Female
  Weight: 63.397 kg

DRUGS (2)
  1. ABROCITINIB [Suspect]
     Active Substance: ABROCITINIB
     Indication: Dermatitis atopic
     Dosage: 200 MG, DAILY
     Route: 048
     Dates: start: 20190507, end: 20200305
  2. AMOXICILLIN\CLAVULANATE POTASSIUM [Concomitant]
     Active Substance: AMOXICILLIN\CLAVULANATE POTASSIUM
     Indication: Bronchitis bacterial
     Dosage: 1000 MG, 2X/DAY (Q12H)
     Route: 048
     Dates: start: 20191210, end: 20191220

REACTIONS (1)
  - Corneal abscess [Recovered/Resolved]

NARRATIVE: CASE EVENT DATE: 20191215
